FAERS Safety Report 14671020 (Version 1)
Quarter: 2018Q1

REPORT INFORMATION
  Report Type: Spontaneous
  Country: US (occurrence: US)
  Receive Date: 20180322
  Receipt Date: 20180322
  Transmission Date: 20180509
  Serious: Yes (Hospitalization)
  Sender: FDA-Public Use
  Company Number: US-VIFOR (INTERNATIONAL) INC.-VIT-2018-02704

PATIENT
  Age: 64 Year
  Sex: Male

DRUGS (16)
  1. VELTASSA [Suspect]
     Active Substance: PATIROMER
     Indication: BLOOD POTASSIUM INCREASED
     Route: 048
  2. RETINOL [Concomitant]
     Active Substance: RETINOL
  3. SIMVASTATIN. [Concomitant]
     Active Substance: SIMVASTATIN
  4. CYANOCOBALAMIN. [Concomitant]
     Active Substance: CYANOCOBALAMIN
  5. LEVOTHYROXINE. [Concomitant]
     Active Substance: LEVOTHYROXINE
  6. PANTOPRAZOLE [Concomitant]
     Active Substance: PANTOPRAZOLE
  7. FUROSEMIDE. [Concomitant]
     Active Substance: FUROSEMIDE
  8. ERGOCALCIFEROL. [Concomitant]
     Active Substance: ERGOCALCIFEROL
  9. GABAPENTIN. [Concomitant]
     Active Substance: GABAPENTIN
     Dosage: ONE IN THE MORNING AND TWO AT NIGHT
  10. ACETYLSALICYLIC ACID [Concomitant]
     Active Substance: ASPIRIN
  11. BACID [Concomitant]
     Active Substance: LACTOBACILLUS ACIDOPHILUS
  12. BENADRYL [Concomitant]
     Active Substance: DIPHENHYDRAMINE HYDROCHLORIDE
     Dosage: 2 IN MORNING AND 2 AT NIGHT
  13. LACTULOSE. [Concomitant]
     Active Substance: LACTULOSE
  14. SPIRONOLACTONE. [Concomitant]
     Active Substance: SPIRONOLACTONE
  15. CLAVULANATE POTASSIUM~~AMOXICILLIN TRIHYDRATE [Concomitant]
  16. NADOLOL. [Concomitant]
     Active Substance: NADOLOL
     Dosage: TWO IN MORNING AND TWO AT NIGHT

REACTIONS (3)
  - Skin ulcer [Unknown]
  - Musculoskeletal stiffness [Unknown]
  - Postoperative wound infection [Unknown]

NARRATIVE: CASE EVENT DATE: 201803
